FAERS Safety Report 6892675-2 (Version None)
Quarter: 2010Q3

REPORT INFORMATION
  Report Type: 
  Country: None (occurrence: None)
  Receive Date: 20100731
  Receipt Date: 20080903
  Transmission Date: 20110219
  Serious: No
  Sender: FDA-Public Use
  Company Number: US-PFIZER INC-2008066221

PATIENT
  Sex: Female
  Weight: 42.2 kg

DRUGS (7)
  1. NEURONTIN [Suspect]
     Indication: TRIGEMINAL NEURALGIA
  2. LYRICA [Suspect]
     Indication: TRIGEMINAL NEURALGIA
     Dates: start: 20080723
  3. TRILEPTAL [Suspect]
     Indication: TRIGEMINAL NEURALGIA
  4. HYZAAR [Concomitant]
  5. SIMVASTATIN [Concomitant]
  6. PYRIDOSTIGMINE BROMIDE [Concomitant]
  7. ZOLOFT [Concomitant]

REACTIONS (3)
  - DIPLOPIA [None]
  - DRUG INEFFECTIVE [None]
  - VISION BLURRED [None]
